FAERS Safety Report 5057094-2 (Version None)
Quarter: 2006Q3

REPORT INFORMATION
  Report Type: 
  Country: None (occurrence: None)
  Receive Date: 20060718
  Receipt Date: 20060629
  Transmission Date: 20061208
  Serious: Yes (Other)
  Sender: FDA-Public Use
  Company Number: WAES 0607ARG00005

PATIENT
  Age: 48 Year
  Sex: Male

DRUGS (4)
  1. CRIXIVAN [Suspect]
  2. LAMIVUDINE [Concomitant]
  3. NEVIRAPINE [Concomitant]
  4. STAVUDINE [Concomitant]

REACTIONS (1)
  - OSTEONECROSIS [None]
